FAERS Safety Report 7740313-9 (Version None)
Quarter: 2011Q3

REPORT INFORMATION
  Report Type: 
  Country: None (occurrence: None)
  Receive Date: 20110909
  Receipt Date: 20110831
  Transmission Date: 20111222
  Serious: Yes (Other)
  Sender: FDA-Public Use
  Company Number: CA-JNJFOC-20110504745

PATIENT
  Sex: Female
  Weight: 62.9 kg

DRUGS (6)
  1. ASPIRIN [Concomitant]
  2. ATACAND [Concomitant]
  3. REMICADE [Suspect]
     Indication: COLITIS ULCERATIVE
     Route: 042
     Dates: start: 20061003
  4. REMICADE [Suspect]
     Route: 042
     Dates: start: 20110501
  5. ZOPICLONE [Concomitant]
  6. PERINDOPRIL ERBUMINE [Concomitant]

REACTIONS (1)
  - LUNG DISORDER [None]
